FAERS Safety Report 4742072-0 (Version None)
Quarter: 2005Q3

REPORT INFORMATION
  Report Type: 
  Country: None (occurrence: None)
  Receive Date: 20050810
  Receipt Date: 20050810
  Transmission Date: 20060218
  Serious: Yes (Hospitalization)
  Sender: FDA-Public Use
  Company Number: None

PATIENT
  Age: 63 Year
  Sex: Male
  Weight: 108.2 kg

DRUGS (16)
  1. MESALAMINE [Suspect]
     Indication: COLITIS
     Dosage: 400 MG SA TID
     Dates: start: 20050604, end: 20050621
  2. AMOXICILLIN [Concomitant]
  3. HUMULIN N [Concomitant]
  4. EPOETIN ALFA, RECOMB [Concomitant]
  5. OMEPRAZOLE [Concomitant]
  6. SIMVASTATIN [Concomitant]
  7. GLUCOSE [Concomitant]
  8. LANCET, TECHLITE [Concomitant]
  9. FERROUS SULFATE TAB [Concomitant]
  10. CLOTRIMAZOLE [Concomitant]
  11. FUROSEMIDE [Concomitant]
  12. ATENOLOL [Concomitant]
  13. VALSARTAN [Concomitant]
  14. TERAZOSIN HCL [Concomitant]
  15. NITROGLYCERIN [Concomitant]
  16. CYANOCOBALAMIN [Concomitant]

REACTIONS (2)
  - CHILLS [None]
  - PYREXIA [None]
